FAERS Safety Report 5738084-0 (Version None)
Quarter: 2008Q2

REPORT INFORMATION
  Report Type: 
  Country: None (occurrence: None)
  Receive Date: 20080514
  Receipt Date: 20080509
  Transmission Date: 20081010
  Serious: Yes (Hospitalization)
  Sender: FDA-Public Use
  Company Number: US-ELI_LILLY_AND_COMPANY-US200805001935

PATIENT
  Sex: Male

DRUGS (2)
  1. HUMALOG [Suspect]
     Dosage: UNK, AS NEEDED
     Dates: start: 20070101
  2. LANTUS [Concomitant]
     Dosage: 60 U, DAILY (1/D)

REACTIONS (2)
  - BLOOD GLUCOSE FLUCTUATION [None]
  - CARDIAC PACEMAKER INSERTION [None]
